FAERS Safety Report 15224755 (Version 1)
Quarter: 2018Q3

REPORT INFORMATION
  Report Type: Spontaneous
  Country: US (occurrence: US)
  Receive Date: 20180706
  Receipt Date: 20180706
  Transmission Date: 20181010
  Serious: Yes (Death)
  Sender: FDA-Public Use
  Company Number: None

PATIENT
  Age: 34 Year
  Sex: Male

DRUGS (1)
  1. PALIPERIDOINE [Suspect]
     Active Substance: PALIPERIDONE
     Route: 048
     Dates: start: 20170531, end: 20170629

REACTIONS (2)
  - Loss of personal independence in daily activities [None]
  - Sleep disorder [None]

NARRATIVE: CASE EVENT DATE: 20170531
